FAERS Safety Report 19996859 (Version 1)
Quarter: 2021Q4

REPORT INFORMATION
  Report Type: Spontaneous
  Country: US (occurrence: US)
  Receive Date: 20211026
  Receipt Date: 20211026
  Transmission Date: 20220303
  Serious: Yes (Hospitalization)
  Sender: FDA-Public Use
  Company Number: US-UNICHEM PHARMACEUTICALS (USA) INC-UCM202110-000965

PATIENT
  Age: 68 Year
  Sex: Male

DRUGS (1)
  1. HYDROCHLOROTHIAZIDE [Suspect]
     Active Substance: HYDROCHLOROTHIAZIDE
     Indication: Product used for unknown indication
     Dosage: UNKNOWN

REACTIONS (5)
  - Mental status changes [Recovering/Resolving]
  - Dyspnoea [Recovering/Resolving]
  - Sinus bradycardia [Recovering/Resolving]
  - Pulseless electrical activity [Recovering/Resolving]
  - Hyponatraemia [Recovering/Resolving]
